FAERS Safety Report 5711623-1 (Version None)
Quarter: 2008Q2

REPORT INFORMATION
  Report Type: 
  Country: None (occurrence: None)
  Receive Date: 20080416
  Receipt Date: 20080331
  Transmission Date: 20081010
  Serious: Yes (Hospitalization)
  Sender: FDA-Public Use
  Company Number: S08-FRA-01403-02

PATIENT
  Sex: Male
  Weight: 3.03 kg

DRUGS (9)
  1. SEROPLEX(LSCITALOPRAM) [Suspect]
     Dosage: 10 MG BID TRANSPLACENTAL
     Route: 064
     Dates: end: 20080204
  2. TERCIAN (CYAMEMAZINE) [Suspect]
     Dosage: 50 MG QD TRANSPLACENTAL
     Route: 064
     Dates: end: 20080204
  3. XANAX [Suspect]
     Dosage: 0.5 MG TID TRANSPLACENTAL
     Route: 064
     Dates: end: 20080110
  4. ATARAX [Suspect]
     Dates: start: 20080110, end: 20080204
  5. SUBUTEX [Suspect]
     Dosage: 8 MG QD TRANSPLACENTAL
     Route: 064
     Dates: start: 20071226, end: 20080204
  6. ALCOHOL [Suspect]
  7. HEROIN [Suspect]
  8. CANNABIS [Suspect]
  9. COCAINE [Suspect]

REACTIONS (14)
  - ABDOMINAL DISTENSION [None]
  - ABDOMINAL PAIN [None]
  - ABNORMAL FAECES [None]
  - AGITATION NEONATAL [None]
  - BACTERIAL INFECTION [None]
  - DRUG WITHDRAWAL SYNDROME NEONATAL [None]
  - DYSMORPHISM [None]
  - FOETAL DISTRESS SYNDROME [None]
  - HYPERTONIA NEONATAL [None]
  - HYPOGLYCAEMIA NEONATAL [None]
  - MECONIUM IN AMNIOTIC FLUID [None]
  - NEONATAL DISORDER [None]
  - RADIATION EXPOSURE DURING PREGNANCY [None]
  - TREMOR NEONATAL [None]
